FAERS Safety Report 24695554 (Version 1)
Quarter: 2024Q4

REPORT INFORMATION
  Report Type: Spontaneous
  Country: GB (occurrence: GB)
  Receive Date: 20241204
  Receipt Date: 20241204
  Transmission Date: 20250114
  Serious: No
  Sender: ALKEM
  Company Number: None

PATIENT
  Sex: Female

DRUGS (17)
  1. METFORMIN HYDROCHLORIDE [Suspect]
     Active Substance: METFORMIN HYDROCHLORIDE
     Indication: Product used for unknown indication
     Dosage: 1 GRAM, BID (TWICE DAILY) (WITH OR AFTER FOOD)
     Route: 048
     Dates: start: 20240209
  2. ARIPIPRAZOLE [Suspect]
     Active Substance: ARIPIPRAZOLE
     Indication: Product used for unknown indication
     Dosage: 10 MILLIGRAM, QD (DAILY)
     Route: 048
     Dates: start: 20240212
  3. METOPROLOL SUCCINATE [Suspect]
     Active Substance: METOPROLOL SUCCINATE
     Indication: Product used for unknown indication
     Dosage: 50 MILLIGRAM, QD (ONCE DAILY)
     Route: 048
     Dates: start: 20240209
  4. CHOLECALCIFEROL [Suspect]
     Active Substance: CHOLECALCIFEROL
     Indication: Product used for unknown indication
     Dosage: 1000 INTERNATIONAL UNIT, QD (ONCE DAILY)
     Route: 048
     Dates: start: 20240209
  5. OMEPRAZOLE [Suspect]
     Active Substance: OMEPRAZOLE
     Indication: Product used for unknown indication
     Dosage: UNK
     Route: 065
     Dates: start: 20240209, end: 20240219
  6. OMEPRAZOLE [Suspect]
     Active Substance: OMEPRAZOLE
     Dosage: 20 MILLIGRAM, QD (DAILY)
     Route: 048
     Dates: start: 20240209
  7. ACETAMINOPHEN [Suspect]
     Active Substance: ACETAMINOPHEN
     Indication: Pain
     Dosage: 1 GRAM, PRN (6-MAXIMUM DOSE 4 GRAM PER DAY (WHEN REQUIRED, PRN))
     Route: 048
     Dates: start: 20240209
  8. PROMETHAZINE [Suspect]
     Active Substance: PROMETHAZINE HYDROCHLORIDE
     Indication: Agitation
     Dosage: 25 MILLIGRAM, PRN (6-8 MAXIMUM 50 GRAM PER DAY AS WHEN REQUIRED)
     Route: 048
     Dates: start: 20240209
  9. CARBIMAZOLE [Suspect]
     Active Substance: CARBIMAZOLE
     Indication: Product used for unknown indication
     Dosage: 5 MILLIGRAM, QD (ONCE DAILY)
     Route: 048
     Dates: start: 20240209
  10. CLONAZEPAM [Suspect]
     Active Substance: CLONAZEPAM
     Indication: Product used for unknown indication
     Dosage: 1 MILLIGRAM, BID (TWICE DAILY (OMIT IF SEDATED))
     Route: 048
     Dates: start: 20240209
  11. CLOZARIL [Suspect]
     Active Substance: CLOZAPINE
     Indication: Schizophrenia
     Dosage: UNK
     Route: 048
     Dates: start: 20240313
  12. HUMULIN NOS [Suspect]
     Active Substance: INSULIN HUMAN
     Indication: Product used for unknown indication
     Dosage: 24 INTERNATIONAL UNIT, QD (GLPI (GLUCAGON LIKE PEPTIDE-1) (ONCE DAILY))
     Route: 058
     Dates: start: 20240209
  13. LORAZEPAM [Suspect]
     Active Substance: LORAZEPAM
     Indication: Agitation
     Dosage: UNK, PRN (1-2 MG, 4-6 MAXIMUM DOSE 4 MG PER DAY, AS WHEN REQUIRED)
     Route: 048
     Dates: start: 20240209
  14. MELATONIN [Suspect]
     Active Substance: MELATONIN
     Indication: Product used for unknown indication
     Dosage: 4 MILLIGRAM, QD (ONCE DAILY)
     Route: 048
     Dates: start: 20240209
  15. METHENAMINE [Suspect]
     Active Substance: METHENAMINE
     Indication: Product used for unknown indication
     Dosage: 1 GRAM, BID (TWICE DAILY)
     Route: 048
     Dates: start: 20240209
  16. OZEMPIC [Suspect]
     Active Substance: SEMAGLUTIDE
     Indication: Product used for unknown indication
     Dosage: 0.25 MILLIGRAM, ONCE WEEKLY (EVERY THURSDAY)
     Route: 058
     Dates: start: 20240209
  17. SIMVASTATIN [Suspect]
     Active Substance: SIMVASTATIN
     Indication: Product used for unknown indication
     Dosage: 7.5 MILLIGRAM, HS (ONCE AT NIGHT)
     Route: 048
     Dates: start: 20240209

REACTIONS (4)
  - Malaise [Unknown]
  - Sedation [Unknown]
  - Therapy interrupted [Unknown]
  - Glomerular filtration rate decreased [Unknown]
